FAERS Safety Report 15780741 (Version 1)
Quarter: 2019Q1

REPORT INFORMATION
  Report Type: Spontaneous
  Country: FR (occurrence: FR)
  Receive Date: 20190102
  Receipt Date: 20190102
  Transmission Date: 20190417
  Serious: Yes (Hospitalization, Other)
  Sender: FDA-Public Use
  Company Number: FR-PROVELL PHARMACEUTICALS-2060748

PATIENT
  Age: 48 Year
  Sex: Female

DRUGS (1)
  1. EUTHYROX [Suspect]
     Active Substance: LEVOTHYROXINE SODIUM
     Indication: PRODUCT USED FOR UNKNOWN INDICATION

REACTIONS (22)
  - Dyspnoea [None]
  - Psychiatric symptom [None]
  - Sleep disorder [None]
  - Headache [None]
  - Neck pain [None]
  - Balance disorder [None]
  - Asthenia [None]
  - Hypotonia [None]
  - Affective disorder [None]
  - Abnormal behaviour [None]
  - Impaired work ability [None]
  - Thyroid atrophy [None]
  - Weight decreased [None]
  - Suicide attempt [None]
  - Fatigue [None]
  - Tremor [None]
  - Amnesia [None]
  - Alopecia [None]
  - Palpitations [None]
  - Apathy [None]
  - Major depression [None]
  - Disorientation [None]

NARRATIVE: CASE EVENT DATE: 20180701
